FAERS Safety Report 17829296 (Version 1)
Quarter: 2020Q2

REPORT INFORMATION
  Report Type: Spontaneous
  Country: US (occurrence: US)
  Receive Date: 20200527
  Receipt Date: 20200527
  Transmission Date: 20200714
  Serious: No
  Sender: FDA-Public Use
  Company Number: US-UCBSA-2019020452

PATIENT
  Sex: Male

DRUGS (3)
  1. FLONASE [MOMETASONE FUROATE] [Concomitant]
     Active Substance: MOMETASONE FUROATE
     Indication: HYPERSENSITIVITY
  2. CIMZIA [Suspect]
     Active Substance: CERTOLIZUMAB PEGOL
     Indication: PSORIATIC ARTHROPATHY
     Dosage: 400 MILLIGRAM, EV 4 WEEKS
  3. VORTEX [Concomitant]
     Active Substance: SODIUM FLUORIDE
     Indication: HYPERSENSITIVITY

REACTIONS (3)
  - Oropharyngeal pain [Unknown]
  - Laryngitis [Unknown]
  - Sinusitis [Unknown]
